FAERS Safety Report 22305885 (Version 1)
Quarter: 2023Q2

REPORT INFORMATION
  Report Type: Other
  Country: US (occurrence: US)
  Receive Date: 20230511
  Receipt Date: 20230511
  Transmission Date: 20230722
  Serious: No
  Sender: FDA-Public Use
  Company Number: US-ALVOGEN-2023089430

PATIENT
  Age: 40 Year
  Sex: Male

DRUGS (2)
  1. PREGABALIN [Suspect]
     Active Substance: PREGABALIN
     Indication: Paraesthesia
  2. DULOXETINE [Concomitant]
     Active Substance: DULOXETINE
     Indication: Paraesthesia

REACTIONS (1)
  - Off label use [Unknown]
